FAERS Safety Report 19305152 (Version 1)
Quarter: 2021Q2

REPORT INFORMATION
  Report Type: Report from Study
  Country: None (occurrence: AU)
  Receive Date: 20210525
  Receipt Date: 20210525
  Transmission Date: 20210717
  Serious: Yes (Disabling, Other)
  Sender: FDA-Public Use
  Company Number: AU-ABBVIE-21K-008-3915850-00

PATIENT
  Age: 75 Year
  Sex: Female

DRUGS (4)
  1. QUETIAPINE. [Concomitant]
     Active Substance: QUETIAPINE
     Indication: PRODUCT USED FOR UNKNOWN INDICATION
     Dosage: DOSE INCREASED
  2. QUETIAPINE. [Concomitant]
     Active Substance: QUETIAPINE
     Dosage: DOSE INCREASED
  3. DUODOPA [Suspect]
     Active Substance: CARBIDOPA\LEVODOPA
     Indication: PARKINSON^S DISEASE
     Route: 050
     Dates: start: 20190221
  4. DUODOPA [Suspect]
     Active Substance: CARBIDOPA\LEVODOPA
     Dosage: 15 MLS FOR THE MORNING DOSE 5.1 MLS/HR FOR CONTINUES DOSE?DOSE INCREASED
     Route: 050
     Dates: start: 20210427

REACTIONS (27)
  - Depressed mood [Unknown]
  - Crying [Unknown]
  - Anxiety [Unknown]
  - Malaise [Unknown]
  - Dystonia [Unknown]
  - Feeling hot [Not Recovered/Not Resolved]
  - Urinary incontinence [Recovered/Resolved]
  - General physical health deterioration [Unknown]
  - Foot deformity [Unknown]
  - Mental disorder [Unknown]
  - Basal cell carcinoma [Unknown]
  - Wheelchair user [Unknown]
  - Parkinson^s disease [Unknown]
  - Restlessness [Unknown]
  - Hallucination, auditory [Not Recovered/Not Resolved]
  - Oral discomfort [Not Recovered/Not Resolved]
  - Sleep terror [Unknown]
  - Tongue discomfort [Not Recovered/Not Resolved]
  - Salivary hypersecretion [Recovered/Resolved]
  - Speech disorder [Unknown]
  - Delusion [Not Recovered/Not Resolved]
  - Emotional disorder [Unknown]
  - Hallucinations, mixed [Unknown]
  - Squamous cell carcinoma of skin [Unknown]
  - Hallucination, visual [Not Recovered/Not Resolved]
  - Bradykinesia [Unknown]
  - Bladder disorder [Unknown]

NARRATIVE: CASE EVENT DATE: 2021
